FAERS Safety Report 11071176 (Version 2)
Quarter: 2015Q3

REPORT INFORMATION
  Report Type: Spontaneous
  Country: US (occurrence: US)
  Receive Date: 20150428
  Receipt Date: 20150720
  Transmission Date: 20151125
  Serious: Yes (Hospitalization, Other)
  Sender: FDA-Public Use
  Company Number: US-PFIZER INC-2015140178

PATIENT
  Age: 72 Year
  Sex: Female
  Weight: 106 kg

DRUGS (14)
  1. FUROSEMIDE. [Concomitant]
     Active Substance: FUROSEMIDE
     Dosage: 40 MG, 1X/DAY
     Route: 048
  2. LISINOPRIL. [Concomitant]
     Active Substance: LISINOPRIL
     Dosage: 40 MG, DAILY
     Route: 048
  3. ALBUTEROL SULFATE HFA [Concomitant]
     Dosage: 90 ?G, 2 PUFFS INHALATION EVERY 4 HOURS AS NEEDED)
     Route: 055
  4. LIPITOR [Concomitant]
     Active Substance: ATORVASTATIN CALCIUM
     Dosage: 10 MG, DAILY (AT BEDTIME)
     Route: 048
  5. PREDNISONE. [Concomitant]
     Active Substance: PREDNISONE
     Dosage: 2 TABLETS FOR FOUR DAYS THEN 1 TABLET FOR FIVE DAYS THEN STOP
     Route: 048
  6. ALBUTEROL SULFATE. [Concomitant]
     Active Substance: ALBUTEROL SULFATE
     Dosage: 3 ML, EVERY 4 HOURS AS NEEDED
     Route: 055
  7. REVATIO [Suspect]
     Active Substance: SILDENAFIL CITRATE
     Dosage: 20 MG, 3X/DAY
  8. OXYGEN. [Concomitant]
     Active Substance: OXYGEN
     Dosage: 24 HOURS A DAY
  9. CLOPIDOGREL [Concomitant]
     Active Substance: CLOPIDOGREL BISULFATE
     Dosage: 75 MG, 1X/DAY
     Route: 048
  10. PANTOPRAZOLE [Concomitant]
     Active Substance: PANTOPRAZOLE SODIUM
     Dosage: 40 MG, 1X/DAY
     Route: 048
  11. METFORMIN [Concomitant]
     Active Substance: METFORMIN HYDROCHLORIDE
     Dosage: 500 MG, 1X/DAY
     Route: 048
  12. SPIRIVA [Concomitant]
     Active Substance: TIOTROPIUM BROMIDE MONOHYDRATE
     Dosage: 18 ?G, DAILY (INHALATION EVERY DAY)
  13. ASMANEX [Concomitant]
     Active Substance: MOMETASONE FUROATE
     Dosage: 220 ?G,1 PUFF(S) INHALATION EVERY DAY
  14. REVATIO [Suspect]
     Active Substance: SILDENAFIL CITRATE
     Indication: DYSPNOEA
     Dosage: 20 MG, 3X/DAY
     Route: 048
     Dates: start: 2013

REACTIONS (5)
  - Abdominal distension [Not Recovered/Not Resolved]
  - Expired product administered [Unknown]
  - Pleural effusion [Not Recovered/Not Resolved]
  - Pericardial effusion [Unknown]
  - Peripheral swelling [Not Recovered/Not Resolved]

NARRATIVE: CASE EVENT DATE: 20150525
